FAERS Safety Report 14307576 (Version 1)
Quarter: 2017Q4

REPORT INFORMATION
  Report Type: Spontaneous
  Country: DK (occurrence: DK)
  Receive Date: 20171220
  Receipt Date: 20171220
  Transmission Date: 20180321
  Serious: Yes (Life-Threatening, Hospitalization)
  Sender: FDA-Public Use
  Company Number: DK-CIPLA LTD.-2017DK24768

PATIENT

DRUGS (5)
  1. ALENDRONIC ACID [Concomitant]
     Active Substance: ALENDRONIC ACID
     Indication: OSTEOPOROSIS
  2. SERTRALINE [Suspect]
     Active Substance: SERTRALINE HYDROCHLORIDE
     Indication: DEPRESSION
     Dosage: 25 MG, UNK
     Route: 048
     Dates: start: 20171023, end: 20171117
  3. TOILAX [Concomitant]
     Active Substance: BISACODYL
     Indication: CONSTIPATION
     Dosage: 10 MG, (STYRKE: 5 MG)
     Route: 048
     Dates: start: 20160216
  4. ALENDRONIC ACID [Concomitant]
     Active Substance: ALENDRONIC ACID
     Indication: OSTEOPOROSIS
     Dosage: 70 MG, UNK
     Route: 048
     Dates: start: 20140930
  5. PAMOL [Concomitant]
     Active Substance: ACETAMINOPHEN
     Indication: PAIN
     Dosage: 1000 MG, UNK
     Route: 048
     Dates: start: 20160214

REACTIONS (8)
  - Dysphagia [Unknown]
  - Aphasia [Unknown]
  - Dry mouth [Unknown]
  - Vertigo [Unknown]
  - Decreased appetite [Unknown]
  - Dysarthria [Unknown]
  - Swelling face [Unknown]
  - Fatigue [Unknown]

NARRATIVE: CASE EVENT DATE: 20171116
